FAERS Safety Report 14125884 (Version 2)
Quarter: 2020Q3

REPORT INFORMATION
  Report Type: Report from Study
  Country: DE (occurrence: DE)
  Receive Date: 20171025
  Receipt Date: 20180419
  Transmission Date: 20201105
  Serious: Yes (Hospitalization)
  Sender: FDA-Public Use
  Company Number: DE-JNJFOC-20171026961

PATIENT
  Age: 66 Year
  Sex: Female
  Weight: 68 kg

DRUGS (4)
  1. YONDELIS [Suspect]
     Active Substance: TRABECTEDIN
     Route: 042
  2. YONDELIS [Suspect]
     Active Substance: TRABECTEDIN
     Indication: OVARIAN CANCER
     Dosage: INTENDED DOSE: 1.1 MG/M2, ADMINISTERED DOSE: 1.9 MG. LAST ADMINISTERED CYCLE 3.
     Route: 042
     Dates: start: 20170822, end: 20171010
  3. CAELYX [Suspect]
     Active Substance: DOXORUBICIN HYDROCHLORIDE
     Indication: OVARIAN CANCER
     Dosage: INTENDED DOSE: 30 MG/M2, ADMINISTERED DOSE: 51.90 MG. LAST ADMINISTERED CYCLE 3
     Route: 042
     Dates: start: 20170822, end: 20171010
  4. CAELYX [Suspect]
     Active Substance: DOXORUBICIN HYDROCHLORIDE
     Route: 042

REACTIONS (1)
  - Traumatic liver injury [Recovered/Resolved]

NARRATIVE: CASE EVENT DATE: 20171016
